FAERS Safety Report 5838827-1 (Version None)
Quarter: 2008Q3

REPORT INFORMATION
  Report Type: 
  Country: None (occurrence: None)
  Receive Date: 20080801
  Receipt Date: 20080506
  Transmission Date: 20090109
  Serious: Yes (Hospitalization)
  Sender: FDA-Public Use
  Company Number: 522934

PATIENT
  Age: 87 Year
  Sex: Female

DRUGS (3)
  1. BONIVA [Suspect]
     Indication: OSTEOPOROSIS
     Dosage: INTRAVENOUS
     Route: 042
     Dates: start: 20070516, end: 20070516
  2. PREDNISONE [Concomitant]
  3. METOPROLOL TARTRATE [Concomitant]

REACTIONS (4)
  - BONE PAIN [None]
  - DYSPHAGIA [None]
  - MYALGIA [None]
  - PAIN [None]
